FAERS Safety Report 10335546 (Version 2)
Quarter: 2014Q3

REPORT INFORMATION
  Report Type: Spontaneous
  Country: US (occurrence: US)
  Receive Date: 20140723
  Receipt Date: 20140723
  Transmission Date: 20150326
  Serious: No
  Sender: FDA-Public Use
  Company Number: US-UNITED THERAPEUTICS-UTC-043665

PATIENT
  Sex: Female
  Weight: 95.25 kg

DRUGS (2)
  1. REMODULIN [Suspect]
     Active Substance: TREPROSTINIL
     Dosage: 0.052 UG/KG/MIN
     Route: 058
     Dates: start: 20131118
  2. ADCIRCA [Concomitant]
     Active Substance: TADALAFIL

REACTIONS (7)
  - Infusion site pruritus [Unknown]
  - Catheter site rash [Unknown]
  - Hypersensitivity [Unknown]
  - Infusion site erythema [Not Recovered/Not Resolved]
  - Rash [Unknown]
  - Infusion site pain [Unknown]
  - Eczema [Unknown]
